FAERS Safety Report 8840206 (Version 2)
Quarter: 2013Q2

REPORT INFORMATION
  Report Type: Report from Study
  Country: JP (occurrence: JP)
  Receive Date: 20121015
  Receipt Date: 20130416
  Transmission Date: 20140414
  Serious: Yes (Hospitalization)
  Sender: FDA-Public Use
  Company Number: JP-VERTEX PHARMACEUTICAL INC.-AE-2012-008334

PATIENT
  Age: 70 Year
  Sex: Female

DRUGS (7)
  1. VX-950 (TELAPREVIR) [Suspect]
     Indication: CHRONIC HEPATITIS C
     Dosage: 2250 MG, QD
     Route: 048
     Dates: start: 20120522, end: 20120528
  2. REBETOL [Suspect]
     Indication: CHRONIC HEPATITIS C
     Dosage: 600 MG, QD
     Route: 048
     Dates: start: 20120522, end: 20120528
  3. PEGINTRON /01543001/ [Suspect]
     Indication: CHRONIC HEPATITIS C
     Dosage: 1.5 ?G/KG, QW
     Route: 058
     Dates: start: 20120522, end: 20120528
  4. IMIGRAN                            /01044801/ [Concomitant]
     Dosage: 100 MG, PRN
     Route: 048
     Dates: end: 20130203
  5. OLMETEC [Concomitant]
     Dosage: 10 MG, QD
     Route: 048
     Dates: end: 20120806
  6. OLMETEC [Concomitant]
     Dosage: 20 MG, QD
     Route: 048
     Dates: start: 20120807, end: 20121028
  7. REZALTAS [Concomitant]
     Dosage: 1 DF, QD
     Route: 048
     Dates: start: 20121029

REACTIONS (1)
  - Rash [Recovered/Resolved]
